FAERS Safety Report 5581315-0 (Version None)
Quarter: 2008Q1

REPORT INFORMATION
  Report Type: 
  Country: None (occurrence: None)
  Receive Date: 20080104
  Receipt Date: 20071227
  Transmission Date: 20080703
  Serious: Yes (Hospitalization, Other)
  Sender: FDA-Public Use
  Company Number: PHBS2007BR21525

PATIENT
  Age: 68 Year
  Sex: Male
  Weight: 48 kg

DRUGS (3)
  1. FORADIL [Suspect]
     Indication: PNEUMONIA
  2. CORTICOSTEROID NOS [Concomitant]
     Route: 065
  3. DRUG THERAPY NOS [Concomitant]

REACTIONS (2)
  - FATIGUE [None]
  - PULMONARY BULLA [None]
